FAERS Safety Report 7205318-5 (Version None)
Quarter: 2010Q4

REPORT INFORMATION
  Report Type: 
  Country: None (occurrence: None)
  Receive Date: 20101231
  Receipt Date: 20101223
  Transmission Date: 20110411
  Serious: Yes (Hospitalization)
  Sender: FDA-Public Use
  Company Number: CH-BRACCO-000054

PATIENT
  Sex: Male

DRUGS (11)
  1. CELEBREX [Concomitant]
  2. METOPROLOL [Concomitant]
     Route: 048
  3. BETOPTIC [Concomitant]
  4. ASPIRIN [Concomitant]
     Route: 048
     Dates: start: 20101207
  5. SIMCORA [Concomitant]
     Dosage: HALF A TABLET OF 40 MG
  6. DAFALGAN [Concomitant]
  7. METFIN [Concomitant]
  8. PRAXILENE [Concomitant]
  9. COVERSUM [Concomitant]
  10. IOPAMIRO [Suspect]
     Indication: SPINAL MYELOGRAM
     Dosage: 600 MG
     Route: 037
     Dates: start: 20101206, end: 20101206
  11. IOPAMIRO [Suspect]
     Indication: SPINAL COLUMN STENOSIS
     Dosage: 600 MG
     Route: 037
     Dates: start: 20101206, end: 20101206

REACTIONS (1)
  - MENINGITIS BACTERIAL [None]
